FAERS Safety Report 10091223 (Version 1)
Quarter: 2014Q2

REPORT INFORMATION
  Report Type: Spontaneous
  Country: US (occurrence: US)
  Receive Date: 20140421
  Receipt Date: 20140421
  Transmission Date: 20141212
  Serious: Yes (Hospitalization, Disabling, Other)
  Sender: FDA-Public Use
  Company Number: US-ELI_LILLY_AND_COMPANY-US201404003858

PATIENT
  Sex: Female

DRUGS (5)
  1. HUMALOG LISPRO [Suspect]
     Indication: TYPE 1 DIABETES MELLITUS
     Route: 065
  2. HUMAN INSULIN (RDNA ORIGIN) [Suspect]
     Indication: PRODUCT USED FOR UNKNOWN INDICATION
     Route: 065
  3. LANTUS [Concomitant]
  4. PLAVIX [Concomitant]
  5. LISINOPRIL [Concomitant]

REACTIONS (3)
  - Cerebrovascular accident [Unknown]
  - Blindness [Unknown]
  - Transient ischaemic attack [Unknown]
